FAERS Safety Report 5583617-0 (Version None)
Quarter: 2007Q4

REPORT INFORMATION
  Report Type: 
  Country: None (occurrence: None)
  Receive Date: 20071231
  Receipt Date: 20071217
  Transmission Date: 20080405
  Serious: Yes (Other)
  Sender: FDA-Public Use
  Company Number: CHPA2007US12507

PATIENT
  Sex: Female

DRUGS (1)
  1. TRIAMINIC SRT [Suspect]
     Dosage: ONCE/SINGLE, ORAL
     Route: 048
     Dates: start: 20071115, end: 20071115

REACTIONS (1)
  - ACCIDENTAL DRUG INTAKE BY CHILD [None]
